FAERS Safety Report 8816721 (Version 2)
Quarter: 2012Q4

REPORT INFORMATION
  Report Type: Spontaneous
  Country: US (occurrence: None)
  Receive Date: 20121001
  Receipt Date: 20121009
  Transmission Date: 20130627
  Serious: Yes (Death)
  Sender: FDA-Public Use
  Company Number: DKLU1084765

PATIENT
  Age: 28 Month
  Sex: Male

DRUGS (2)
  1. SABRIL [Suspect]
     Indication: GRAND MAL CONVULSION
     Dosage: 1000 mg milligram(s), 2 in 1 D, Oral
     Route: 048
     Dates: start: 20120622
  2. SABRIL [Suspect]
     Indication: EPILEPSY
     Dosage: 1000 mg milligram(s), 2 in 1 D, Oral
     Route: 048
     Dates: start: 20120622

REACTIONS (3)
  - Death [None]
  - Brain neoplasm [None]
  - Malignant neoplasm progression [None]
